FAERS Safety Report 7512076-3 (Version None)
Quarter: 2011Q2

REPORT INFORMATION
  Report Type: 
  Country: None (occurrence: None)
  Receive Date: 20110531
  Receipt Date: 20110522
  Transmission Date: 20111010
  Serious: Yes (Hospitalization, Other)
  Sender: FDA-Public Use
  Company Number: US-BAYER-2011-023774

PATIENT
  Age: 21 Year
  Sex: Female
  Weight: 90.249 kg

DRUGS (18)
  1. DIAMOX [Concomitant]
     Dosage: UNK
     Dates: start: 20100206
  2. MELOXICAM [Concomitant]
     Indication: HEADACHE
     Dosage: UNK
     Dates: start: 20090201
  3. LEXAPRO [Concomitant]
     Dosage: UNK
     Dates: start: 20091201, end: 20100901
  4. DOXYCYLINE HYCLATE [Concomitant]
     Indication: ACNE
     Dosage: UNK
     Dates: start: 20100401, end: 20110301
  5. PRISTIQ [Concomitant]
     Dosage: UNK
     Dates: start: 20090501, end: 20101001
  6. TOPIRAMATE [Concomitant]
     Indication: HEADACHE
     Dosage: UNK
     Dates: start: 20100901
  7. SEROQUEL [Concomitant]
     Indication: DEPRESSION
     Dosage: UNK
     Dates: start: 20090601
  8. FLAXSEED OIL [Concomitant]
     Dosage: UNK
     Dates: start: 20100206
  9. LORAZEPAM [Concomitant]
     Indication: ANXIETY
     Dosage: UNK
     Dates: start: 20091101
  10. CAL-MAG-ZINC [Concomitant]
     Dosage: UNK
     Dates: start: 20100206
  11. CYMBALTA [Concomitant]
     Indication: ANXIETY
     Dosage: UNK
     Dates: start: 20100901
  12. YAZ [Suspect]
     Indication: CONTRACEPTION
     Dosage: UNK
     Route: 048
     Dates: start: 20081001, end: 20100201
  13. CAFFEINE [Concomitant]
  14. FISH OIL [Concomitant]
     Dosage: UNK
     Dates: start: 20100206
  15. NASONEX [Concomitant]
     Dosage: UNK
     Dates: start: 20050501, end: 20101201
  16. NORTRIPTYLINE HCL [Concomitant]
     Indication: HEADACHE
     Dosage: UNK
     Dates: start: 20100201
  17. MULTI-VITAMIN [Concomitant]
     Dosage: UNK
     Dates: start: 20100206
  18. TRICOR [Concomitant]
     Dosage: UNK
     Dates: start: 20100101

REACTIONS (2)
  - CEREBROVASCULAR ACCIDENT [None]
  - INTRACRANIAL VENOUS SINUS THROMBOSIS [None]
